FAERS Safety Report 19594992 (Version 1)
Quarter: 2021Q3

REPORT INFORMATION
  Report Type: Spontaneous
  Country: US (occurrence: US)
  Receive Date: 20210722
  Receipt Date: 20210722
  Transmission Date: 20211014
  Serious: Yes (Disabling, Other)
  Sender: FDA-Public Use
  Company Number: US-PURDUE-USA-2020-0273840

PATIENT
  Sex: Female

DRUGS (1)
  1. MS IR [Suspect]
     Active Substance: MORPHINE SULFATE
     Indication: PRODUCT USED FOR UNKNOWN INDICATION
     Dosage: UNKNOWN
     Route: 064

REACTIONS (6)
  - Foetal exposure during pregnancy [Unknown]
  - Developmental delay [Unknown]
  - Drug withdrawal syndrome neonatal [Unknown]
  - Attention deficit hyperactivity disorder [Unknown]
  - Learning disability [Unknown]
  - Premature baby [Recovered/Resolved]
